FAERS Safety Report 20517853 (Version 1)
Quarter: 2022Q1

REPORT INFORMATION
  Report Type: Spontaneous
  Country: TR (occurrence: TR)
  Receive Date: 20220225
  Receipt Date: 20220225
  Transmission Date: 20220424
  Serious: Yes (Life-Threatening, Other)
  Sender: FDA-Public Use
  Company Number: TR-INCYTE CORPORATION-2021IN011805

PATIENT

DRUGS (2)
  1. PEMAZYRE [Suspect]
     Active Substance: PEMIGATINIB
     Indication: Cholangiocarcinoma
     Dosage: 13.5 MILLIGRAM
     Route: 065
     Dates: start: 202110
  2. PEMAZYRE [Suspect]
     Active Substance: PEMIGATINIB
     Dosage: UNK (2 WEEKS DRUG TAKE, 1 WEEK BREAK, AND CONTINUE)
     Route: 065
     Dates: start: 20220110

REACTIONS (10)
  - Ageusia [Recovering/Resolving]
  - Nail injury [Recovering/Resolving]
  - Blood phosphorus abnormal [Recovering/Resolving]
  - Neuropathy peripheral [Recovering/Resolving]
  - Rash [Recovering/Resolving]
  - Back pain [Recovering/Resolving]
  - Constipation [Recovering/Resolving]
  - Diarrhoea [Recovering/Resolving]
  - Stomatitis [Recovering/Resolving]
  - Alopecia [Recovering/Resolving]

NARRATIVE: CASE EVENT DATE: 20211010
